FAERS Safety Report 9649937 (Version 2)
Quarter: 2013Q4

REPORT INFORMATION
  Report Type: Spontaneous
  Country: US (occurrence: US)
  Receive Date: 20131028
  Receipt Date: 20131028
  Transmission Date: 20140711
  Serious: No
  Sender: FDA-Public Use
  Company Number: US-PURDUE-USA-2013-0099821

PATIENT
  Sex: Female

DRUGS (3)
  1. OXYCONTIN (NDA 22-272) [Suspect]
     Indication: FIBROMYALGIA
     Dosage: 240 MG, DAILY
     Route: 048
     Dates: start: 2003
  2. OXYCODONE                          /00045603/ [Concomitant]
     Indication: BREAKTHROUGH PAIN
     Route: 048
  3. NORCO [Concomitant]
     Indication: BREAKTHROUGH PAIN
     Route: 048

REACTIONS (5)
  - Drug effect delayed [Unknown]
  - Fatigue [Unknown]
  - Constipation [Unknown]
  - Disturbance in attention [Unknown]
  - Memory impairment [Unknown]
